FAERS Safety Report 4815451-0 (Version None)
Quarter: 2005Q4

REPORT INFORMATION
  Report Type: 
  Country: None (occurrence: None)
  Receive Date: 20051027
  Receipt Date: 20051027
  Transmission Date: 20060501
  Serious: Yes (Hospitalization, Other)
  Sender: FDA-Public Use
  Company Number: None

PATIENT
  Sex: Male
  Weight: 77.6 kg

DRUGS (6)
  1. DAUNORUBICIN [Suspect]
     Indication: ACUTE LYMPHOCYTIC LEUKAEMIA
     Dosage: SEE IMAGE
     Route: 042
     Dates: end: 20050830
  2. DAUNORUBICIN [Suspect]
     Indication: ACUTE LYMPHOCYTIC LEUKAEMIA
     Dosage: SEE IMAGE
     Route: 042
     Dates: start: 20050809
  3. VINCRISTINE SULFATE [Suspect]
     Dosage: SEE IMAGE
     Route: 042
     Dates: end: 20050830
  4. PREDNISONE [Suspect]
     Dosage: SEE IMAGE
     Route: 048
     Dates: end: 20050905
  5. L-ASPAGINASE [Suspect]
     Dosage: SEE IMAGE
     Route: 030
  6. METHOTREXATE [Suspect]
     Dosage: SEE IMAGE
     Route: 037
     Dates: end: 20050823

REACTIONS (15)
  - ASTHENIA [None]
  - ATELECTASIS [None]
  - BLOOD BILIRUBIN INCREASED [None]
  - CHEST PAIN [None]
  - CHOLELITHIASIS [None]
  - COMPUTERISED TOMOGRAM ABNORMAL [None]
  - EJECTION FRACTION DECREASED [None]
  - HEPATOSPLENIC CANDIDIASIS [None]
  - INFECTION [None]
  - LUNG CONSOLIDATION [None]
  - LUNG INFILTRATION [None]
  - OEDEMA PERIPHERAL [None]
  - PLEURAL EFFUSION [None]
  - PLEURITIC PAIN [None]
  - SPINAL DISORDER [None]
